FAERS Safety Report 7245171-7 (Version None)
Quarter: 2011Q1

REPORT INFORMATION
  Report Type: 
  Country: None (occurrence: None)
  Receive Date: 20110118
  Receipt Date: 20110106
  Transmission Date: 20110831
  Serious: Yes (Hospitalization)
  Sender: FDA-Public Use
  Company Number: 101046-2

PATIENT
  Age: 42 Year
  Sex: Male
  Weight: 90 kg

DRUGS (1)
  1. ETOPOSIDE [Suspect]
     Indication: NON-SMALL CELL LUNG CANCER
     Dosage: 50MG/M2
     Dates: start: 20100426, end: 20100526

REACTIONS (1)
  - LARGE INTESTINE PERFORATION [None]
